FAERS Safety Report 4944212-7 (Version None)
Quarter: 2006Q1

REPORT INFORMATION
  Report Type: 
  Country: None (occurrence: None)
  Receive Date: 20060309
  Receipt Date: 20060221
  Transmission Date: 20060701
  Serious: Yes (Hospitalization)
  Sender: FDA-Public Use
  Company Number: 2005-00782

PATIENT
  Age: 54 Year
  Sex: Male
  Weight: 87.1 kg

DRUGS (3)
  1. VELCADE [Suspect]
     Indication: MULTIPLE MYELOMA
     Dosage: 1.00 MG/M2, 2/WEEK, INTRAVENOUS
     Route: 042
     Dates: start: 20050221, end: 20050321
  2. SCIO-469 () CAPSULE [Suspect]
     Indication: MULTIPLE MYELOMA
     Dosage: SEE IMAGE
     Route: 048
     Dates: start: 20050110, end: 20050321
  3. SCIO-469 () CAPSULE [Suspect]
     Indication: MULTIPLE MYELOMA
     Dosage: SEE IMAGE
     Route: 048
     Dates: start: 20050401

REACTIONS (3)
  - DEVICE RELATED INFECTION [None]
  - DRUG TOXICITY [None]
  - KLEBSIELLA SEPSIS [None]
